FAERS Safety Report 17870945 (Version 1)
Quarter: 2020Q2

REPORT INFORMATION
  Report Type: Spontaneous
  Country: DE (occurrence: DE)
  Receive Date: 20200608
  Receipt Date: 20200608
  Transmission Date: 20200714
  Serious: Yes (Other)
  Sender: FDA-Public Use
  Company Number: DE-MYLANLABS-2020M1054195

PATIENT
  Sex: Female

DRUGS (2)
  1. VALSARTAN 80MG FILM-COATED TABLETS [Suspect]
     Active Substance: VALSARTAN
     Indication: PRODUCT USED FOR UNKNOWN INDICATION
     Dosage: 40 MILLIGRAM, QD/ 1/2 TABLET
     Dates: start: 2014
  2. VALSARTAN. [Suspect]
     Active Substance: VALSARTAN
     Indication: PRODUCT USED FOR UNKNOWN INDICATION
     Dosage: 40 MILLIGRAM, QD/ 1/2 TABLET

REACTIONS (5)
  - Recalled product administered [Unknown]
  - Mental impairment [Unknown]
  - Impaired quality of life [Unknown]
  - Fear of disease [Unknown]
  - Product contamination [Unknown]
